FAERS Safety Report 5006401-5 (Version None)
Quarter: 2006Q2

REPORT INFORMATION
  Report Type: 
  Country: None (occurrence: None)
  Receive Date: 20060519
  Receipt Date: 20060508
  Transmission Date: 20061013
  Serious: Yes (Other)
  Sender: FDA-Public Use
  Company Number: US-SANOFI-SYNTHELABO-A03200602872

PATIENT
  Sex: Male

DRUGS (1)
  1. UROXATRAL [Suspect]
     Indication: BENIGN PROSTATIC HYPERPLASIA
     Dosage: UNK
     Route: 048
     Dates: start: 20060201, end: 20060504

REACTIONS (5)
  - ASTHENIA [None]
  - FALSE POSITIVE LABORATORY RESULT [None]
  - HEPATITIS B ANTIGEN POSITIVE [None]
  - HEPATOTOXICITY [None]
  - TRANSAMINASES INCREASED [None]
